FAERS Safety Report 22541664 (Version 1)
Quarter: 2023Q2

REPORT INFORMATION
  Report Type: Spontaneous
  Country: GB (occurrence: GB)
  Receive Date: 20230609
  Receipt Date: 20230609
  Transmission Date: 20230721
  Serious: Yes (Other)
  Sender: FDA-Public Use
  Company Number: GB-MHRA-MED-202305312012197920-KWLMV

PATIENT
  Sex: Female
  Weight: 90 kg

DRUGS (1)
  1. DUPILUMAB [Suspect]
     Active Substance: DUPILUMAB
     Indication: Asthma
     Dosage: 200 MG, QOW
     Dates: start: 20220912, end: 20230529

REACTIONS (6)
  - Inflammation [Unknown]
  - Feeling hot [Unknown]
  - Erythema [Unknown]
  - Swelling face [Unknown]
  - Eye inflammation [Not Recovered/Not Resolved]
  - Arthralgia [Unknown]

NARRATIVE: CASE EVENT DATE: 20220901
